FAERS Safety Report 7294647-5 (Version None)
Quarter: 2011Q1

REPORT INFORMATION
  Report Type: 
  Country: None (occurrence: None)
  Receive Date: 20110204
  Receipt Date: 20110124
  Transmission Date: 20110831
  Serious: Yes (Hospitalization)
  Sender: FDA-Public Use
  Company Number: 809092

PATIENT
  Age: 72 Year
  Sex: Female
  Weight: 75.2 kg

DRUGS (4)
  1. VANCOMYCIN HCL [Suspect]
     Indication: INFECTION
     Dosage: 750 MG, 3X A WEEK, INTRAVENOUS
     Route: 042
     Dates: start: 20110117, end: 20110117
  2. HEPARIN [Concomitant]
  3. SODIUM CHLORIDE INJ (SODIUM CHLORIDE) [Concomitant]
  4. EPOGEN [Concomitant]

REACTIONS (7)
  - PRURITUS [None]
  - RHINORRHOEA [None]
  - VOMITING [None]
  - BLOOD PRESSURE SYSTOLIC INCREASED [None]
  - NAUSEA [None]
  - RASH [None]
  - INFUSION RELATED REACTION [None]
